FAERS Safety Report 7712363-X (Version None)
Quarter: 2011Q3

REPORT INFORMATION
  Report Type: 
  Country: None (occurrence: None)
  Receive Date: 20110826
  Receipt Date: 20110815
  Transmission Date: 20111222
  Serious: Yes (Other)
  Sender: FDA-Public Use
  Company Number: BR-ROCHE-796943

PATIENT
  Age: 14 Year
  Sex: Male

DRUGS (1)
  1. ISOTRETINOIN [Suspect]
     Indication: ACNE
     Route: 048
     Dates: start: 20100101, end: 20100101

REACTIONS (4)
  - GROWTH RETARDATION [None]
  - ACNE [None]
  - HORMONE LEVEL ABNORMAL [None]
  - CHOLELITHIASIS [None]
